FAERS Safety Report 16748106 (Version 1)
Quarter: 2019Q3

REPORT INFORMATION
  Report Type: Report from Study
  Country: US (occurrence: US)
  Receive Date: 20190827
  Receipt Date: 20190827
  Transmission Date: 20191005
  Serious: Yes (Hospitalization)
  Sender: FDA-Public Use
  Company Number: US-ACTELION-A-NJ2019-193489

PATIENT
  Sex: Female
  Weight: 74.83 kg

DRUGS (3)
  1. TREPROSTINIL. [Concomitant]
     Active Substance: TREPROSTINIL
  2. SILDENAFIL CITRATE. [Concomitant]
     Active Substance: SILDENAFIL CITRATE
  3. OPSUMIT [Suspect]
     Active Substance: MACITENTAN
     Indication: PULMONARY ARTERIAL HYPERTENSION
     Dosage: 10 MG, QD
     Route: 048

REACTIONS (12)
  - Diarrhoea [Unknown]
  - Sinusitis [Unknown]
  - Toothache [Unknown]
  - Administration site extravasation [Unknown]
  - Device issue [Unknown]
  - Headache [Unknown]
  - Respiration abnormal [Unknown]
  - Nightmare [Unknown]
  - Swelling [Unknown]
  - Nasal congestion [Unknown]
  - Device dislocation [Unknown]
  - Neck pain [Unknown]
